FAERS Safety Report 9167441 (Version 1)
Quarter: 2013Q1

REPORT INFORMATION
  Report Type: Spontaneous
  Country: US (occurrence: None)
  Receive Date: 20130301
  Receipt Date: 20130301
  Transmission Date: 20140127
  Serious: Yes (Other)
  Sender: FDA-Public Use
  Company Number: 1611270

PATIENT
  Age: 7 Year
  Sex: Female

DRUGS (2)
  1. IRINOTECAN HYDROCHLORIDE [Suspect]
     Dosage: 20 MG/M 2 MILLIGRAM(S)/SQ. METER (CYCLICAL) INTRAVENOUS (NOT OTHERWISE SPECIFIED)
     Route: 042
  2. TEMOZOLOMIDE [Suspect]
     Dosage: 100 MG/M 2 MILLIGRAM(S)/SQ. METER (CYCLICAL) ORAL
     Route: 048

REACTIONS (2)
  - Renal failure [None]
  - Haemodialysis [None]
